FAERS Safety Report 10397396 (Version 9)
Quarter: 2016Q1

REPORT INFORMATION
  Report Type: Report from Study
  Country: TR (occurrence: TR)
  Receive Date: 20140820
  Receipt Date: 20160219
  Transmission Date: 20160525
  Serious: Yes (Hospitalization, Other)
  Sender: FDA-Public Use
  Company Number: TR-ABBVIE-14K-161-1273232-00

PATIENT
  Age: 53 Year
  Sex: Female
  Weight: 87 kg

DRUGS (7)
  1. INH [Suspect]
     Active Substance: ISONIAZID
     Indication: PROPHYLAXIS
  2. HUMIRA [Suspect]
     Active Substance: ADALIMUMAB
     Route: 058
     Dates: start: 20140909
  3. OPAGIS [Concomitant]
     Indication: PROPHYLAXIS
     Dates: start: 20131101
  4. OPAGIS [Concomitant]
     Indication: GASTRIC DISORDER
  5. ENDOL [Concomitant]
     Active Substance: INDOMETHACIN
     Indication: ANKYLOSING SPONDYLITIS
     Route: 048
     Dates: start: 20140715
  6. HUMIRA [Suspect]
     Active Substance: ADALIMUMAB
     Indication: ANKYLOSING SPONDYLITIS
     Route: 058
     Dates: start: 20140411, end: 20140707
  7. INH [Suspect]
     Active Substance: ISONIAZID
     Indication: TUBERCULOSIS
     Route: 048
     Dates: start: 20131101, end: 20140715

REACTIONS (2)
  - Thyroid disorder [Recovering/Resolving]
  - White blood cell count decreased [Recovered/Resolved]

NARRATIVE: CASE EVENT DATE: 20140707
